FAERS Safety Report 20524035 (Version 6)
Quarter: 2022Q2

REPORT INFORMATION
  Report Type: Report from Study
  Country: JP (occurrence: JP)
  Receive Date: 20220228
  Receipt Date: 20220405
  Transmission Date: 20220721
  Serious: Yes (Life-Threatening, Other)
  Sender: FDA-Public Use
  Company Number: JP-CHUGAI-2022006225

PATIENT
  Age: 79 Year
  Sex: Male
  Weight: 65 kg

DRUGS (6)
  1. ATEZOLIZUMAB [Suspect]
     Active Substance: ATEZOLIZUMAB
     Indication: Prostate cancer
     Route: 041
     Dates: start: 20220208, end: 20220208
  2. METHYLCOBALAMIN [Concomitant]
     Active Substance: METHYLCOBALAMIN
     Indication: Neuropathy peripheral
     Dosage: 500 MICROGRAM, TID
     Route: 048
  3. PREGABALIN [Concomitant]
     Active Substance: PREGABALIN
     Indication: Neuropathy peripheral
     Dosage: 75 MILLIGRAM, QD
     Route: 048
  4. CILNIDIPINE [Concomitant]
     Active Substance: CILNIDIPINE
     Indication: Hypertension
     Dosage: 20 MILLIGRAM, BID
     Route: 048
  5. AZILSARTAN KAMEDOXOMIL [Concomitant]
     Active Substance: AZILSARTAN KAMEDOXOMIL
     Indication: Hypertension
     Dosage: 20 MILLIGRAM, QD
     Route: 048
  6. PREDONINE [Concomitant]
     Active Substance: PREDNISOLONE
     Indication: Prostate cancer
     Route: 048

REACTIONS (19)
  - Septic shock [Recovering/Resolving]
  - Renal impairment [Recovering/Resolving]
  - Metastases to lymph nodes [Unknown]
  - Enterocolitis [Recovering/Resolving]
  - Respiratory failure [Recovering/Resolving]
  - Diverticulitis [Unknown]
  - Megacolon [Unknown]
  - Pneumonia [Unknown]
  - Septic embolus [Unknown]
  - Splenic abscess [Unknown]
  - Metastases to lymph nodes [Unknown]
  - Tumour lysis syndrome [Recovering/Resolving]
  - Metastases to bone [Unknown]
  - Bradycardia [Unknown]
  - Pulseless electrical activity [Unknown]
  - Cardio-respiratory arrest [Unknown]
  - Coronary artery stenosis [Unknown]
  - Asphyxia [Unknown]
  - Off label use [Unknown]

NARRATIVE: CASE EVENT DATE: 20220220
